FAERS Safety Report 20614652 (Version 1)
Quarter: 2022Q1

REPORT INFORMATION
  Report Type: Other
  Country: US (occurrence: None)
  Receive Date: 20220321
  Receipt Date: 20220321
  Transmission Date: 20220423
  Serious: Yes (Other)
  Sender: FDA-Public Use
  Company Number: US-ROCHE-3041605

PATIENT
  Sex: Female
  Weight: 52.6 kg

DRUGS (10)
  1. OCREVUS [Suspect]
     Active Substance: OCRELIZUMAB
     Indication: Multiple sclerosis
     Route: 042
     Dates: start: 20210503
  2. LEXAPRO [Concomitant]
     Active Substance: ESCITALOPRAM OXALATE
  3. COVID-19 VACCINE [Concomitant]
  4. SHINGRIX [Concomitant]
     Active Substance: RECOMBINANT VARICELLA ZOSTER VIRUS (VZV) GLYCOPROTEIN E
  5. INFLUENZA VIRUS VACCINE [Concomitant]
     Active Substance: INFLUENZA VIRUS VACCINE
  6. CLOBETASOL [Concomitant]
     Active Substance: CLOBETASOL
  7. ESCITALOPRAM OXALATE [Concomitant]
     Active Substance: ESCITALOPRAM OXALATE
  8. LORAZEPAM [Concomitant]
     Active Substance: LORAZEPAM
  9. NIACINAMIDE [Concomitant]
     Active Substance: NIACINAMIDE
  10. TETRACYCLINE [Concomitant]
     Active Substance: TETRACYCLINE

REACTIONS (13)
  - Pain in extremity [Unknown]
  - Influenza [Unknown]
  - Stress [Unknown]
  - Nervousness [Unknown]
  - Sleep disorder [Unknown]
  - Micturition urgency [Unknown]
  - Hypoaesthesia [Unknown]
  - Diarrhoea [Unknown]
  - Decreased vibratory sense [Unknown]
  - Coordination abnormal [Unknown]
  - Platelet disorder [Unknown]
  - Gait disturbance [Unknown]
  - Neurogenic bladder [Unknown]
